FAERS Safety Report 11405180 (Version 1)
Quarter: 2015Q3

REPORT INFORMATION
  Report Type: Spontaneous
  Country: FR (occurrence: FR)
  Receive Date: 20150821
  Receipt Date: 20150821
  Transmission Date: 20151125
  Serious: Yes (Other)
  Sender: FDA-Public Use
  Company Number: FR-BAYER-2015-398226

PATIENT
  Age: 73 Year
  Sex: Male

DRUGS (10)
  1. COOLMETEC [Suspect]
     Active Substance: HYDROCHLOROTHIAZIDE\OLMESARTAN MEDOXOMIL
     Indication: HYPERTENSION
     Dosage: 1 DF, QD
     Route: 048
     Dates: start: 201501, end: 201507
  2. FEBUXOSTAT. [Suspect]
     Active Substance: FEBUXOSTAT
     Route: 048
  3. PANTOPRAZOLE [Suspect]
     Active Substance: PANTOPRAZOLE SODIUM
     Dosage: UNK
     Route: 048
  4. GLICLAZIDE [Suspect]
     Active Substance: GLICLAZIDE
     Route: 048
  5. AMIODARONE HYDROCHLORIDE. [Concomitant]
     Active Substance: AMIODARONE HYDROCHLORIDE
  6. GLUCOR [Suspect]
     Active Substance: ACARBOSE
     Dosage: UNK
     Route: 048
  7. TRIMEBUTINE [Concomitant]
     Active Substance: TRIMEBUTINE
  8. NIFUROXAZIDE [Concomitant]
     Active Substance: NIFUROXAZIDE
  9. VITAMIN D3 [Concomitant]
     Active Substance: CHOLECALCIFEROL
  10. SIMVASTATINE [Suspect]
     Active Substance: SIMVASTATIN
     Route: 048

REACTIONS (2)
  - Weight decreased [Unknown]
  - Diarrhoea [Recovered/Resolved]

NARRATIVE: CASE EVENT DATE: 20150710
